FAERS Safety Report 17660611 (Version 1)
Quarter: 2020Q2

REPORT INFORMATION
  Report Type: Report from Study
  Country: None (occurrence: US)
  Receive Date: 20200413
  Receipt Date: 20200413
  Transmission Date: 20200713
  Serious: Yes (Life-Threatening, Hospitalization, Disabling)
  Sender: FDA-Public Use
  Company Number: US-ABBVIE-17K-163-3071279-00

PATIENT
  Age: 47 Year
  Sex: Male
  Weight: 84 kg

DRUGS (9)
  1. RITUXIMAB. [Suspect]
     Active Substance: RITUXIMAB
     Indication: CHRONIC LYMPHOCYTIC LEUKAEMIA STAGE 2
     Dosage: 784.0 MG, EVERY 28 DAYS
     Route: 042
     Dates: start: 20160721, end: 20161013
  2. IMBRUVICA [Suspect]
     Active Substance: IBRUTINIB
     Dosage: 420 MG, QD
     Route: 048
     Dates: start: 20160726
  3. IMBRUVICA [Suspect]
     Active Substance: IBRUTINIB
     Dosage: 420 MG, QD
     Route: 048
     Dates: start: 20161014, end: 20170301
  4. BENDAMUSTINE [Suspect]
     Active Substance: BENDAMUSTINE
     Indication: CHRONIC LYMPHOCYTIC LEUKAEMIA STAGE 2
     Dosage: 250 MG, DAY 1 AND 2 OF THE 28 DAY CYCLE
     Route: 042
     Dates: start: 20160721, end: 20161013
  5. RITUXIMAB. [Suspect]
     Active Substance: RITUXIMAB
     Dosage: 784.0 MG, EVERY 28 DAY
     Route: 042
     Dates: start: 20160722, end: 20161013
  6. IMBRUVICA [Suspect]
     Active Substance: IBRUTINIB
     Indication: CHRONIC LYMPHOCYTIC LEUKAEMIA STAGE 2
     Dosage: 420 MG, QD
     Route: 048
     Dates: start: 20160721, end: 20161013
  7. MOTRIN [Concomitant]
     Active Substance: IBUPROFEN
     Indication: PAIN
     Dosage: 200 MG, PRN
     Route: 048
     Dates: start: 20160706
  8. BENDAMUSTINE [Suspect]
     Active Substance: BENDAMUSTINE
     Dosage: 189 MG, EVERY 28 DAY
     Route: 042
     Dates: start: 20160722, end: 20161013
  9. MOTRIN [Concomitant]
     Active Substance: IBUPROFEN
     Indication: MIGRAINE

REACTIONS (2)
  - Mitral valve disease [Recovered/Resolved with Sequelae]
  - Rash maculo-papular [Recovered/Resolved]

NARRATIVE: CASE EVENT DATE: 20161021
